FAERS Safety Report 20929418 (Version 1)
Quarter: 2022Q2

REPORT INFORMATION
  Report Type: Spontaneous
  Country: JP (occurrence: JP)
  Receive Date: 20220608
  Receipt Date: 20220608
  Transmission Date: 20220721
  Serious: Yes (Other)
  Sender: FDA-Public Use
  Company Number: JP-SUN PHARMACEUTICAL INDUSTRIES LTD-2022R1-339381

PATIENT
  Age: 9 Year
  Sex: Male
  Weight: 18.8 kg

DRUGS (1)
  1. SOTALOL [Suspect]
     Active Substance: SOTALOL
     Indication: Atrial tachycardia
     Dosage: 1.5 MILLIGRAM/KILOGRAM, DAILY
     Route: 048

REACTIONS (1)
  - Therapy non-responder [Unknown]
